FAERS Safety Report 24088634 (Version 1)
Quarter: 2024Q3

REPORT INFORMATION
  Report Type: Report from Study
  Country: US (occurrence: US)
  Receive Date: 20240715
  Receipt Date: 20240715
  Transmission Date: 20241017
  Serious: Yes (Other)
  Sender: ABBVIE
  Company Number: US-ABBVIE-5836954

PATIENT
  Age: 69 Year
  Sex: Male

DRUGS (1)
  1. VENCLEXTA [Suspect]
     Active Substance: VENETOCLAX
     Indication: Acute myeloid leukaemia
     Route: 048
     Dates: start: 202301

REACTIONS (4)
  - Central venous catheterisation [Unknown]
  - Catheter site swelling [Unknown]
  - Skin discolouration [Unknown]
  - Catheter site discolouration [Unknown]

NARRATIVE: CASE EVENT DATE: 20240701
